FAERS Safety Report 20937163 (Version 1)
Quarter: 2022Q2

REPORT INFORMATION
  Report Type: Spontaneous
  Country: US (occurrence: US)
  Receive Date: 20220609
  Receipt Date: 20220609
  Transmission Date: 20220721
  Serious: No
  Sender: FDA-Public Use
  Company Number: US-TEVA-2022-US-2037165

PATIENT
  Sex: Female

DRUGS (1)
  1. ETHINYL ESTRADIOL\ETONOGESTREL [Suspect]
     Active Substance: ETHINYL ESTRADIOL\ETONOGESTREL
     Dosage: 0.120/0.015 MG-MG
     Route: 065

REACTIONS (5)
  - Therapeutic product effect incomplete [Unknown]
  - Weight increased [Unknown]
  - Headache [Unknown]
  - Nausea [Unknown]
  - Mood swings [Unknown]
